FAERS Safety Report 9649468 (Version 1)
Quarter: 2013Q4

REPORT INFORMATION
  Report Type: Spontaneous
  Country: GB (occurrence: None)
  Receive Date: 20131010
  Receipt Date: 20131010
  Transmission Date: 20140711
  Serious: Yes (Other)
  Sender: FDA-Public Use
  Company Number: E2B_00001241

PATIENT
  Age: 43 Year
  Sex: Male

DRUGS (3)
  1. LEVETIRACETAM [Suspect]
     Indication: PRODUCT USED FOR UNKNOWN INDICATION
  2. SODIUM VALPROATE (UNKNOWN) [Concomitant]
  3. LAMOTRIGINE (UNKNOWN) (LAMOTRIGINE) [Concomitant]

REACTIONS (2)
  - Aggression [None]
  - Physical assault [None]
